FAERS Safety Report 17233171 (Version 1)
Quarter: 2020Q1

REPORT INFORMATION
  Report Type: Spontaneous
  Country: US (occurrence: US)
  Receive Date: 20200104
  Receipt Date: 20200104
  Transmission Date: 20200409
  Serious: Yes (Other)
  Sender: FDA-Public Use
  Company Number: US-EMCURE PHARMACEUTICALS LTD-2019-EPL-1236

PATIENT
  Age: 30 Year
  Sex: Female

DRUGS (3)
  1. ACETAZOLAMIDE. [Suspect]
     Active Substance: ACETAZOLAMIDE
     Indication: PRODUCT USED FOR UNKNOWN INDICATION
     Dosage: 500 MILLIGRAM, BID
  2. ACETAZOLAMIDE. [Suspect]
     Active Substance: ACETAZOLAMIDE
     Dosage: 2000 MILLIGRAM, DAILY
  3. ACETAZOLAMIDE. [Suspect]
     Active Substance: ACETAZOLAMIDE
     Dosage: 1500 MILLIGRAM

REACTIONS (6)
  - Urine abnormality [Recovered/Resolved]
  - Formication [Recovered/Resolved]
  - Visual perseveration [Recovered/Resolved]
  - Disturbance in attention [Recovered/Resolved]
  - Taste disorder [Recovered/Resolved]
  - Paraesthesia [Recovered/Resolved]
